FAERS Safety Report 9349065 (Version 3)
Quarter: 2013Q3

REPORT INFORMATION
  Report Type: Spontaneous
  Country: FR (occurrence: FR)
  Receive Date: 20130614
  Receipt Date: 20130703
  Transmission Date: 20140515
  Serious: Yes (Death, Hospitalization)
  Sender: FDA-Public Use
  Company Number: FR-UCBSA-088014

PATIENT
  Age: 69 Year
  Sex: Female

DRUGS (7)
  1. KEPPRA [Suspect]
     Route: 048
     Dates: end: 20130506
  2. TEMODAL [Suspect]
     Dosage: CONTINUOUSLY WITHIN ONE CYCLE OF 5 DAYS OVER 7
     Route: 048
     Dates: start: 20130322, end: 20130424
  3. BACTRIM FORTE [Suspect]
     Dosage: 1 TABLET EVERY OTHER DAY
     Route: 048
     Dates: start: 20130322, end: 20130506
  4. DEROXAT [Concomitant]
     Dosage: ON MORNING
  5. CONTRAMAL [Concomitant]
     Dosage: IF REQUIRED
  6. DOLIPRANE [Concomitant]
     Indication: PAIN
     Dosage: AS REQUIRED FOR PAIN
  7. XANAX [Concomitant]
     Indication: ANXIETY
     Dosage: DOSE:0.25 MG

REACTIONS (2)
  - Pulmonary embolism [Fatal]
  - Pancytopenia [Fatal]
